FAERS Safety Report 11822085 (Version 1)
Quarter: 2015Q4

REPORT INFORMATION
  Report Type: Spontaneous
  Country: US (occurrence: US)
  Receive Date: 20151210
  Receipt Date: 20151210
  Transmission Date: 20160305
  Serious: No
  Sender: FDA-Public Use
  Company Number: US-JNJFOC-20150815512

PATIENT
  Age: 83 Year
  Sex: Female

DRUGS (8)
  1. BACTRIM [Concomitant]
     Active Substance: SULFAMETHOXAZOLE\TRIMETHOPRIM
  2. CALCIUM 600+D [Concomitant]
     Active Substance: CALCIUM\VITAMIN D
  3. METAMUCIL [Concomitant]
     Active Substance: PLANTAGO SEED
  4. ACYCLOVIR. [Concomitant]
     Active Substance: ACYCLOVIR
  5. CULTURELLE [Concomitant]
     Active Substance: LACTOBACILLUS RHAMNOSUS
  6. IMBRUVICA [Suspect]
     Active Substance: IBRUTINIB
     Indication: CHRONIC LYMPHOCYTIC LEUKAEMIA
     Route: 048
     Dates: start: 20150429
  7. IMBRUVICA [Suspect]
     Active Substance: IBRUTINIB
     Indication: CHRONIC LYMPHOCYTIC LEUKAEMIA
     Route: 048
  8. VITAMIN D [Concomitant]
     Active Substance: CHOLECALCIFEROL

REACTIONS (8)
  - Limb discomfort [Unknown]
  - Cardiac flutter [Recovered/Resolved]
  - Petechiae [Recovering/Resolving]
  - Dark circles under eyes [Recovering/Resolving]
  - Gastric pH decreased [Recovering/Resolving]
  - Abdominal pain [Recovering/Resolving]
  - Skin haemorrhage [Recovering/Resolving]
  - Neuropathy peripheral [Unknown]

NARRATIVE: CASE EVENT DATE: 2015
